FAERS Safety Report 7154181-X (Version None)
Quarter: 2010Q4

REPORT INFORMATION
  Report Type: 
  Country: None (occurrence: None)
  Receive Date: 20101213
  Receipt Date: 20101203
  Transmission Date: 20110411
  Serious: Yes (Other)
  Sender: FDA-Public Use
  Company Number: US-ELI_LILLY_AND_COMPANY-US201012000986

PATIENT
  Sex: Female
  Weight: 82.54 kg

DRUGS (7)
  1. BYETTA [Suspect]
     Indication: TYPE 2 DIABETES MELLITUS
     Dosage: 10 UG, 2/D
     Route: 058
     Dates: start: 20080101
  2. BYETTA [Suspect]
     Dosage: 5 UG, 2/D
     Route: 058
  3. METFORMIN HCL [Concomitant]
     Indication: TYPE 2 DIABETES MELLITUS
     Dosage: 2000 MG, DAILY (1/D)
  4. GLYBURIDE [Concomitant]
     Indication: TYPE 2 DIABETES MELLITUS
     Dosage: 10 MG, 2/D
  5. ACTOS [Concomitant]
     Indication: TYPE 2 DIABETES MELLITUS
     Dosage: UNK, DAILY (1/D)
  6. LEVOTHROID [Concomitant]
     Indication: THYROID DISORDER
  7. ACCUPRIL [Concomitant]
     Indication: PRODUCT USED FOR UNKNOWN INDICATION

REACTIONS (6)
  - BLOOD GLUCOSE DECREASED [None]
  - CATARACT [None]
  - EYE DISORDER [None]
  - EYE OPERATION [None]
  - EYE OPERATION COMPLICATION [None]
  - EYE SWELLING [None]
